FAERS Safety Report 9228101 (Version 1)
Quarter: 2013Q2

REPORT INFORMATION
  Report Type: Report from Study
  Country: FR (occurrence: FR)
  Receive Date: 20130412
  Receipt Date: 20130412
  Transmission Date: 20140414
  Serious: Yes (Hospitalization)
  Sender: FDA-Public Use
  Company Number: FR-ROCHE-1208496

PATIENT
  Age: 78 Year
  Sex: Male
  Weight: 94 kg

DRUGS (9)
  1. TENECTEPLASE [Suspect]
     Indication: ACUTE MYOCARDIAL INFARCTION
     Route: 040
     Dates: start: 20050416, end: 20050416
  2. HEPARINE CHOAY [Suspect]
     Indication: ACUTE MYOCARDIAL INFARCTION
     Route: 040
     Dates: start: 20050416, end: 20050416
  3. LOVENOX [Suspect]
     Indication: CORONARY ARTERY DISEASE
     Dosage: 0.4/J
     Route: 058
     Dates: start: 20050416
  4. KARDEGIC [Concomitant]
     Indication: CORONARY ARTERY DISEASE
     Route: 048
  5. ELISOR [Concomitant]
     Indication: CORONARY ARTERY DISEASE
     Route: 048
     Dates: start: 20050416
  6. INEXIUM [Concomitant]
     Indication: ULCER
     Route: 065
     Dates: start: 20050425
  7. ARICEPT [Concomitant]
     Indication: DEMENTIA ALZHEIMER^S TYPE
     Route: 048
     Dates: start: 20050423, end: 20050506
  8. TENORMIN [Concomitant]
     Indication: CORONARY ARTERY DISEASE
     Route: 048
     Dates: start: 20050430
  9. TRIATEC [Concomitant]
     Indication: CORONARY ARTERY DISEASE
     Route: 048
     Dates: start: 20050416

REACTIONS (4)
  - Anaemia [Recovered/Resolved]
  - Inflammation [Recovered/Resolved]
  - Presyncope [Recovered/Resolved]
  - Haematochezia [Recovered/Resolved]
